FAERS Safety Report 8888498 (Version 1)
Quarter: 2012Q4

REPORT INFORMATION
  Report Type: 
  Country: DE (occurrence: DE)
  Receive Date: 20121106
  Receipt Date: 20121106
  Transmission Date: 20130627
  Serious: Yes (Hospitalization)
  Sender: FDA-Public Use
  Company Number: PHHY2012DE088305

PATIENT
  Age: 72 Year
  Sex: Female
  Weight: 65 kg

DRUGS (3)
  1. AFINITOR [Suspect]
     Dosage: 10 mg,
     Route: 048
     Dates: start: 20120922
  2. AMITRIPTYLIN [Concomitant]
     Dosage: UNK
     Dates: start: 20120827
  3. PANTOPRAZOLE [Concomitant]
     Dosage: 20 mg
     Dates: start: 2009

REACTIONS (3)
  - Pharyngeal oedema [Recovered/Resolved]
  - Swelling face [Recovered/Resolved]
  - Drug intolerance [Recovered/Resolved]
